FAERS Safety Report 15688514 (Version 1)
Quarter: 2018Q4

REPORT INFORMATION
  Report Type: Spontaneous
  Country: FR (occurrence: FR)
  Receive Date: 20181205
  Receipt Date: 20181205
  Transmission Date: 20190205
  Serious: Yes (Hospitalization, Disabling, Other)
  Sender: FDA-Public Use
  Company Number: FR-EMD SERONO-E2B_90064860

PATIENT
  Sex: Female

DRUGS (3)
  1. GARDASIL [Suspect]
     Active Substance: HUMAN PAPILLOMAVIRUS QUADRIVALENT (TYPES 6, 11, 16, AND 18) VACCINE, RECOMBINANT
     Indication: PROPHYLAXIS
     Route: 065
     Dates: start: 20090701
  2. GARDASIL [Suspect]
     Active Substance: HUMAN PAPILLOMAVIRUS QUADRIVALENT (TYPES 6, 11, 16, AND 18) VACCINE, RECOMBINANT
     Route: 065
     Dates: start: 20090415
  3. REBIF [Suspect]
     Active Substance: INTERFERON BETA-1A
     Indication: PRODUCT USED FOR UNKNOWN INDICATION
     Dosage: 44 (UNITS NOT PROVIDED)?START DATE: 01 JUL 2011
     Route: 065

REACTIONS (16)
  - Reading disorder [Unknown]
  - Injection site cellulitis [Not Recovered/Not Resolved]
  - Influenza like illness [Unknown]
  - Multiple sclerosis [Not Recovered/Not Resolved]
  - Diarrhoea [Unknown]
  - Nausea [Unknown]
  - Malaise [Not Recovered/Not Resolved]
  - Depression [Not Recovered/Not Resolved]
  - Headache [Not Recovered/Not Resolved]
  - Transaminases increased [Recovered/Resolved]
  - Eye pain [Unknown]
  - Fatigue [Not Recovered/Not Resolved]
  - Asthenia [Not Recovered/Not Resolved]
  - Immunodeficiency [Unknown]
  - Injection site haemorrhage [Unknown]
  - Electrocardiogram U wave present [Unknown]

NARRATIVE: CASE EVENT DATE: 200906
